FAERS Safety Report 14630510 (Version 1)
Quarter: 2018Q1

REPORT INFORMATION
  Report Type: Report from Study
  Country: JP (occurrence: JP)
  Receive Date: 20180313
  Receipt Date: 20180313
  Transmission Date: 20180509
  Serious: Yes (Other)
  Sender: FDA-Public Use
  Company Number: JP-GLAXOSMITHKLINE-JP2018JPN038490

PATIENT
  Age: 72 Year
  Sex: Male

DRUGS (5)
  1. ROPINIROLE HYDROCHLORIDE. [Suspect]
     Active Substance: ROPINIROLE HYDROCHLORIDE
     Dosage: 8 MG, 1D
     Route: 048
     Dates: start: 2017, end: 2017
  2. ROPINIROLE HYDROCHLORIDE. [Suspect]
     Active Substance: ROPINIROLE HYDROCHLORIDE
     Dosage: 2 MG, 1D
     Route: 048
     Dates: start: 2017, end: 2017
  3. ROPINIROLE HYDROCHLORIDE. [Suspect]
     Active Substance: ROPINIROLE HYDROCHLORIDE
     Indication: PARKINSON^S DISEASE
     Dosage: UNK
     Route: 048
     Dates: start: 20170330, end: 2017
  4. ROPINIROLE HYDROCHLORIDE. [Suspect]
     Active Substance: ROPINIROLE HYDROCHLORIDE
     Dosage: UNK
     Route: 048
     Dates: start: 2017, end: 20170802
  5. ROPINIROLE HYDROCHLORIDE. [Suspect]
     Active Substance: ROPINIROLE HYDROCHLORIDE
     Dosage: 14 MG, 1D
     Route: 048
     Dates: start: 2017, end: 2017

REACTIONS (4)
  - Somnolence [Recovered/Resolved]
  - Dizziness [Recovered/Resolved]
  - Hallucination, visual [Recovered/Resolved]
  - Sudden onset of sleep [Recovered/Resolved]

NARRATIVE: CASE EVENT DATE: 20170331
